FAERS Safety Report 18463433 (Version 2)
Quarter: 2020Q4

REPORT INFORMATION
  Report Type: Spontaneous
  Country: ES (occurrence: ES)
  Receive Date: 20201104
  Receipt Date: 20201106
  Transmission Date: 20210114
  Serious: Yes (Hospitalization, Other)
  Sender: FDA-Public Use
  Company Number: ES-PFM-2020-20538

PATIENT

DRUGS (3)
  1. PROPRANOLOL HYDROCHLORIDE. [Suspect]
     Active Substance: PROPRANOLOL HYDROCHLORIDE
     Indication: LONG QT SYNDROME CONGENITAL
     Dosage: 1.2 MG/KG/8 HOURS
     Route: 048
  2. PROPRANOLOL HYDROCHLORIDE. [Suspect]
     Active Substance: PROPRANOLOL HYDROCHLORIDE
     Indication: OFF LABEL USE
  3. PROPRANOLOL HYDROCHLORIDE. [Suspect]
     Active Substance: PROPRANOLOL HYDROCHLORIDE
     Indication: LONG QT SYNDROME CONGENITAL
     Dosage: 1.2 MG/KG/8 HOURS
     Route: 048

REACTIONS (6)
  - Overdose [Unknown]
  - Product use in unapproved indication [Unknown]
  - Ventricular arrhythmia [Recovered/Resolved]
  - Inappropriate schedule of product administration [Unknown]
  - Off label use [Unknown]
  - Product use issue [Unknown]
